FAERS Safety Report 25352825 (Version 3)
Quarter: 2025Q2

REPORT INFORMATION
  Report Type: Spontaneous
  Country: US (occurrence: US)
  Receive Date: 20250523
  Receipt Date: 20250618
  Transmission Date: 20250716
  Serious: No
  Sender: BRISTOL-MYERS SQUIBB COMPANY
  Company Number: US-BRISTOL-MYERS SQUIBB COMPANY-2025-074486

PATIENT
  Age: 67 Year
  Sex: Female

DRUGS (1)
  1. KENALOG [Suspect]
     Active Substance: TRIAMCINOLONE ACETONIDE
     Indication: Rotator cuff syndrome
     Dosage: FREQUENCY: ABOUT EVERY 4 MONTHS
     Dates: start: 2024, end: 202504

REACTIONS (8)
  - Decreased immune responsiveness [Unknown]
  - Weight decreased [Unknown]
  - Gait disturbance [Unknown]
  - Alopecia [Unknown]
  - Periarthritis [Unknown]
  - Wrong technique in product usage process [Unknown]
  - Fatigue [Unknown]
  - Pain [Unknown]
